FAERS Safety Report 20977782 (Version 18)
Quarter: 2025Q1

REPORT INFORMATION
  Report Type: Spontaneous
  Country: CA (occurrence: CA)
  Receive Date: 20220618
  Receipt Date: 20250123
  Transmission Date: 20250409
  Serious: Yes (Hospitalization, Other)
  Sender: CELLTRION
  Company Number: CA-CELLTRION INC.-2022CA009497

PATIENT

DRUGS (43)
  1. INFLECTRA [Suspect]
     Active Substance: INFLIXIMAB-DYYB
     Indication: Crohn^s disease
     Route: 042
     Dates: start: 20190123, end: 20200206
  2. INFLECTRA [Suspect]
     Active Substance: INFLIXIMAB-DYYB
     Route: 042
     Dates: start: 20200416
  3. INFLECTRA [Suspect]
     Active Substance: INFLIXIMAB-DYYB
     Route: 042
     Dates: start: 20220413
  4. INFLECTRA [Suspect]
     Active Substance: INFLIXIMAB-DYYB
     Route: 042
     Dates: start: 20220608
  5. INFLECTRA [Suspect]
     Active Substance: INFLIXIMAB-DYYB
     Route: 042
     Dates: start: 20220928
  6. INFLECTRA [Suspect]
     Active Substance: INFLIXIMAB-DYYB
     Route: 042
     Dates: start: 20221122
  7. INFLECTRA [Suspect]
     Active Substance: INFLIXIMAB-DYYB
     Route: 042
     Dates: start: 20230118, end: 20230118
  8. INFLECTRA [Suspect]
     Active Substance: INFLIXIMAB-DYYB
     Route: 042
     Dates: start: 20230517
  9. INFLECTRA [Suspect]
     Active Substance: INFLIXIMAB-DYYB
     Route: 042
     Dates: start: 20230517
  10. INFLECTRA [Suspect]
     Active Substance: INFLIXIMAB-DYYB
     Route: 042
     Dates: start: 20230720
  11. INFLECTRA [Suspect]
     Active Substance: INFLIXIMAB-DYYB
     Route: 042
     Dates: start: 20240625
  12. INFLECTRA [Suspect]
     Active Substance: INFLIXIMAB-DYYB
     Route: 042
     Dates: start: 20240819
  13. INFLECTRA [Suspect]
     Active Substance: INFLIXIMAB-DYYB
     Route: 042
     Dates: start: 20240819
  14. INFLECTRA [Suspect]
     Active Substance: INFLIXIMAB-DYYB
     Route: 042
     Dates: start: 20241114
  15. INFLECTRA [Suspect]
     Active Substance: INFLIXIMAB-DYYB
     Route: 042
     Dates: start: 20250108
  16. ABREVA [Concomitant]
     Active Substance: DOCOSANOL
  17. AMLODIPINE [Concomitant]
     Active Substance: AMLODIPINE BESYLATE
  18. ALPRAZOLAM [Concomitant]
     Active Substance: ALPRAZOLAM
  19. CANDESARTAN [Concomitant]
     Active Substance: CANDESARTAN
  20. CITALOPRAM [Concomitant]
     Active Substance: CITALOPRAM
     Route: 065
     Dates: start: 201907
  21. CITALOPRAM [Concomitant]
     Active Substance: CITALOPRAM
     Route: 065
     Dates: start: 201907
  22. CLONIDINE [Concomitant]
     Active Substance: CLONIDINE
  23. CLOTRIMAZOLE [Concomitant]
     Active Substance: CLOTRIMAZOLE
  24. CYCLOBENZAPRINE [Concomitant]
     Active Substance: CYCLOBENZAPRINE
  25. DIPHENHYDRAMINE [Concomitant]
     Active Substance: DIPHENHYDRAMINE
     Indication: Premedication
     Dates: start: 20230118, end: 20230118
  26. BETAMETHASONE DIPROPIONATE\CALCIPOTRIENE MONOHYDRATE [Concomitant]
     Active Substance: BETAMETHASONE DIPROPIONATE\CALCIPOTRIENE MONOHYDRATE
  27. FOLIC ACID [Concomitant]
     Active Substance: FOLIC ACID
  28. GABAPENTIN [Concomitant]
     Active Substance: GABAPENTIN
     Route: 065
  29. GABAPENTIN [Concomitant]
     Active Substance: GABAPENTIN
     Route: 065
  30. GLICLAZIDE [Concomitant]
     Active Substance: GLICLAZIDE
  31. HYDRADERM [PARAFFIN] [Concomitant]
  32. METHOTREXATE [Concomitant]
     Active Substance: METHOTREXATE
     Indication: Palmoplantar pustulosis
     Route: 065
  33. METHOTREXATE [Concomitant]
     Active Substance: METHOTREXATE
     Route: 065
  34. METOPROLOL [Concomitant]
     Active Substance: METOPROLOL
  35. OZEMPIC [Concomitant]
     Active Substance: SEMAGLUTIDE
     Route: 058
  36. PANTOPRAZOLE SODIUM [Concomitant]
     Active Substance: PANTOPRAZOLE SODIUM
  37. PRIMIDONE [Concomitant]
     Active Substance: PRIMIDONE
  38. RANITIDINE [Concomitant]
     Active Substance: RANITIDINE
  39. ROSUVASTATIN [Concomitant]
     Active Substance: ROSUVASTATIN
  40. TETRACYCLINE [Concomitant]
     Active Substance: TETRACYCLINE
     Route: 065
  41. CYANOCOBALAMIN [Concomitant]
     Active Substance: CYANOCOBALAMIN
  42. CHOLECALCIFEROL [Concomitant]
     Active Substance: CHOLECALCIFEROL
  43. PREDNISONE [Concomitant]
     Active Substance: PREDNISONE
     Indication: Diarrhoea

REACTIONS (14)
  - Condition aggravated [Recovering/Resolving]
  - Cellulitis [Recovered/Resolved]
  - Trigeminal nerve disorder [Recovered/Resolved with Sequelae]
  - Trigeminal neuralgia [Not Recovered/Not Resolved]
  - Blood pressure decreased [Recovered/Resolved]
  - Confusional state [Recovered/Resolved with Sequelae]
  - Clostridium difficile infection [Recovered/Resolved]
  - Cataract [Recovered/Resolved with Sequelae]
  - Eye infection [Not Recovered/Not Resolved]
  - Facial pain [Not Recovered/Not Resolved]
  - Lip ulceration [Not Recovered/Not Resolved]
  - Oral herpes [Not Recovered/Not Resolved]
  - Off label use [Unknown]
  - Intentional product use issue [Unknown]

NARRATIVE: CASE EVENT DATE: 20200201
